FAERS Safety Report 9614744 (Version 2)
Quarter: 2014Q3

REPORT INFORMATION
  Report Type: Report from Study
  Country: JP (occurrence: JP)
  Receive Date: 20131011
  Receipt Date: 20140707
  Transmission Date: 20150326
  Serious: Yes (Death, Hospitalization)
  Sender: FDA-Public Use
  Company Number: JP-ROCHE-1284461

PATIENT
  Age: 64 Year
  Sex: Male

DRUGS (6)
  1. METHOXY POLYETHYLENE GLYCOL-EPOETIN BETA [Suspect]
     Active Substance: PEGZEREPOETIN ALFA
     Indication: NEPHROGENIC ANAEMIA
     Route: 058
     Dates: start: 20130417, end: 20131022
  2. NU-LOTAN [Concomitant]
     Active Substance: LOSARTAN POTASSIUM
     Indication: NEPHROSCLEROSIS
     Route: 048
  3. TAKEPRON [Concomitant]
     Active Substance: LANSOPRAZOLE
     Route: 048
  4. METHOXY POLYETHYLENE GLYCOL-EPOETIN BETA [Suspect]
     Active Substance: PEGZEREPOETIN ALFA
     Indication: NEPHROGENIC ANAEMIA
     Route: 058
     Dates: start: 20130205, end: 20130305
  5. NIFEDIPINE CR [Concomitant]
     Indication: NEPHROSCLEROSIS
     Route: 048
  6. LIVALO [Concomitant]
     Active Substance: PITAVASTATIN CALCIUM
     Indication: NEPHROSCLEROSIS
     Route: 048

REACTIONS (3)
  - Diverticulum intestinal [Unknown]
  - Diverticulitis [Recovered/Resolved]
  - Azotaemia [Fatal]

NARRATIVE: CASE EVENT DATE: 20130320
